FAERS Safety Report 4393583-1 (Version None)
Quarter: 2004Q3

REPORT INFORMATION
  Report Type: 
  Country: None (occurrence: None)
  Receive Date: 20040709
  Receipt Date: 20040122
  Transmission Date: 20050211
  Serious: Yes (Hospitalization, Disabling, Other)
  Sender: FDA-Public Use
  Company Number: GB-AMGEN-US065300

PATIENT
  Sex: Female

DRUGS (7)
  1. ENBREL [Suspect]
     Indication: RHEUMATOID ARTHRITIS
     Route: 058
     Dates: start: 20010901, end: 20040101
  2. RANITIDINE [Concomitant]
  3. VOLTAREN [Concomitant]
  4. ASPIRIN [Concomitant]
  5. TRAMADOL [Concomitant]
  6. CITALOPRAM [Concomitant]
  7. PREDNISOLONE [Concomitant]

REACTIONS (2)
  - CEREBRAL INFARCTION [None]
  - VASCULITIS CEREBRAL [None]
